FAERS Safety Report 9515546 (Version 1)
Quarter: 2013Q3

REPORT INFORMATION
  Report Type: Spontaneous
  Country: FR (occurrence: FR)
  Receive Date: 20130911
  Receipt Date: 20130911
  Transmission Date: 20140515
  Serious: Yes (Hospitalization)
  Sender: FDA-Public Use
  Company Number: PHHY2013FR099700

PATIENT
  Age: 80 Year
  Sex: Female

DRUGS (3)
  1. NISIS [Suspect]
     Indication: HYPERTENSION
     Dosage: UNK UKN, UNK
     Route: 048
  2. OFLOCET [Suspect]
     Indication: SINUSITIS
     Dosage: 1 DF, DAILY
     Route: 048
     Dates: start: 20130610, end: 20130610
  3. OFLOCET [Suspect]
     Indication: LUNG DISORDER

REACTIONS (1)
  - Anaphylactic shock [Recovered/Resolved]
